FAERS Safety Report 10181691 (Version 1)
Quarter: 2014Q2

REPORT INFORMATION
  Report Type: Spontaneous
  Country: US (occurrence: US)
  Receive Date: 20140519
  Receipt Date: 20140519
  Transmission Date: 20141212
  Serious: Yes (Death, Other)
  Sender: FDA-Public Use
  Company Number: US-PFIZER INC-2014131841

PATIENT
  Sex: Male
  Weight: 3 kg

DRUGS (1)
  1. LINCOMYCIN HCL [Suspect]
     Indication: TOOTH INFECTION
     Dosage: 500 MG, 3X/DAY
     Route: 064

REACTIONS (2)
  - Maternal exposure during pregnancy [Fatal]
  - Neonatal respiratory distress syndrome [Fatal]
